FAERS Safety Report 21295379 (Version 1)
Quarter: 2022Q3

REPORT INFORMATION
  Report Type: Report from Study
  Country: BE (occurrence: BE)
  Receive Date: 20220905
  Receipt Date: 20220905
  Transmission Date: 20221027
  Serious: Yes (Other)
  Sender: FDA-Public Use
  Company Number: BE-ABBVIE-22K-013-4527666-00

PATIENT
  Sex: Male
  Weight: 56 kg

DRUGS (13)
  1. CARBIDOPA\LEVODOPA [Suspect]
     Active Substance: CARBIDOPA\LEVODOPA
     Indication: Parkinson^s disease
     Route: 050
     Dates: start: 20150629
  2. CARBIDOPA\LEVODOPA [Suspect]
     Active Substance: CARBIDOPA\LEVODOPA
     Dosage: MD: 6.0 ML, CD: 3.8 ML/H DURING 16 HOURS
     Route: 050
     Dates: start: 20220111, end: 20220520
  3. CARBIDOPA\LEVODOPA [Suspect]
     Active Substance: CARBIDOPA\LEVODOPA
     Dosage: MD: 6.0 ML, CD: 3.8 ML/H, ED: 2.0 ML DURING 16 HOURS
     Route: 050
     Dates: start: 20220520, end: 20220629
  4. CARBIDOPA\LEVODOPA [Suspect]
     Active Substance: CARBIDOPA\LEVODOPA
     Dosage: MD: 6.0 ML, CD: 3.8 ML/H, ED: 2.0 ML DURING 16 HOURS
     Route: 050
     Dates: start: 20220629
  5. ELDEPRYL [Concomitant]
     Active Substance: SELEGILINE HYDROCHLORIDE
     Indication: Product used for unknown indication
  6. ELDEPRYL [Concomitant]
     Active Substance: SELEGILINE HYDROCHLORIDE
  7. LEVOTHYROXINE [Concomitant]
     Active Substance: LEVOTHYROXINE
     Indication: Product used for unknown indication
     Dosage: IN THE MORNING
  8. LEVOTHYROXINE [Concomitant]
     Active Substance: LEVOTHYROXINE
  9. PRAMIPEXOLE [Concomitant]
     Active Substance: PRAMIPEXOLE
     Indication: Product used for unknown indication
  10. PRAMIPEXOLE [Concomitant]
     Active Substance: PRAMIPEXOLE
     Dosage: IN THE MORNING
  11. BENSERAZIDE\LEVODOPA [Concomitant]
     Active Substance: BENSERAZIDE\LEVODOPA
     Indication: Product used for unknown indication
     Dosage: AT BEDTIME
  12. STALEVO [Concomitant]
     Active Substance: CARBIDOPA\ENTACAPONE\LEVODOPA
     Indication: Product used for unknown indication
  13. STALEVO [Concomitant]
     Active Substance: CARBIDOPA\ENTACAPONE\LEVODOPA
     Dosage: AT WAKE UP

REACTIONS (1)
  - Ligament operation [Unknown]
